FAERS Safety Report 8849046 (Version 1)
Quarter: 2012Q4

REPORT INFORMATION
  Report Type: Spontaneous
  Country: US (occurrence: None)
  Receive Date: 20121017
  Receipt Date: 20121017
  Transmission Date: 20130627
  Serious: Yes (Other)
  Sender: FDA-Public Use
  Company Number: None

PATIENT
  Age: 15 Year
  Sex: Male
  Weight: 52.25 kg

DRUGS (1)
  1. SINGULAR [Suspect]
     Indication: ALLERGIC RHINITIS
     Route: 048

REACTIONS (4)
  - Swelling [None]
  - Rash [None]
  - Diarrhoea [None]
  - Reaction to azo-dyes [None]
